APPROVED DRUG PRODUCT: DOXYCYCLINE
Active Ingredient: DOXYCYCLINE
Strength: EQ 50MG BASE
Dosage Form/Route: CAPSULE;ORAL
Application: A205115 | Product #001 | TE Code: AB
Applicant: ZYDUS PHARMACEUTICALS USA INC
Approved: Feb 18, 2016 | RLD: No | RS: No | Type: RX